FAERS Safety Report 9473193 (Version 1)
Quarter: 2013Q3

REPORT INFORMATION
  Report Type: Spontaneous
  Country: US (occurrence: US)
  Receive Date: 20130823
  Receipt Date: 20130823
  Transmission Date: 20140515
  Serious: No
  Sender: FDA-Public Use
  Company Number: US-BRISTOL-MYERS SQUIBB COMPANY-18742981

PATIENT
  Age: 75 Year
  Sex: Female
  Weight: 73.47 kg

DRUGS (8)
  1. SPRYCEL (CML) TABS 100 MG [Suspect]
     Indication: CHRONIC MYELOID LEUKAEMIA
     Dosage: LAST DOSE WAS ON 02-APR-2013
     Dates: start: 20121117
  2. FERREX 28 [Suspect]
  3. SYNTHROID [Concomitant]
  4. BENAZEPRIL HCL [Concomitant]
  5. ADVAIR DISKUS [Concomitant]
     Dosage: 1DF= 250/50-UNITS NOS
  6. VITAMIN B COMPLEX [Concomitant]
     Indication: NEUROPATHY PERIPHERAL
  7. CALCIUM + VITAMIN D [Concomitant]
  8. WARFARIN [Concomitant]

REACTIONS (1)
  - Constipation [Unknown]
